FAERS Safety Report 11926397 (Version 1)
Quarter: 2016Q1

REPORT INFORMATION
  Report Type: Spontaneous
  Country: US (occurrence: None)
  Receive Date: 20160115
  Receipt Date: 20160115
  Transmission Date: 20160526
  Serious: Yes (Death, Life-Threatening, Hospitalization)
  Sender: FDA-Public Use
  Company Number: None

PATIENT
  Age: 38 Year
  Sex: Female
  Weight: 65.77 kg

DRUGS (2)
  1. MIRTAZEPINE [Concomitant]
     Active Substance: MIRTAZAPINE
  2. NATALIZUMAB 300 MG/15 ML [Suspect]
     Active Substance: NATALIZUMAB
     Indication: MULTIPLE SCLEROSIS
     Dosage: 15 ML (300 MG)?ONCE MONTHLY ?IV
     Route: 042
     Dates: start: 200910, end: 201105

REACTIONS (4)
  - Depression [None]
  - Immune reconstitution inflammatory syndrome [None]
  - Mental status changes [None]
  - Progressive multifocal leukoencephalopathy [None]

NARRATIVE: CASE EVENT DATE: 201412
